FAERS Safety Report 13188543 (Version 2)
Quarter: 2017Q1

REPORT INFORMATION
  Report Type: Spontaneous
  Country: FR (occurrence: FR)
  Receive Date: 20170206
  Receipt Date: 20170213
  Transmission Date: 20170428
  Serious: Yes (Death, Other)
  Sender: FDA-Public Use
  Company Number: FR-PFIZER INC-2017041620

PATIENT
  Age: 62 Year
  Sex: Female

DRUGS (17)
  1. LASILIX /00032601/ [Concomitant]
     Active Substance: FUROSEMIDE
  2. DIFFU K [Concomitant]
     Active Substance: POTASSIUM CHLORIDE
  3. SOLUPRED /00016201/ [Concomitant]
     Active Substance: PREDNISOLONE
  4. UPTRAVI [Suspect]
     Active Substance: SELEXIPAG
     Dosage: 400 UG, 2X/DAY
  5. VOLIBRIS [Suspect]
     Active Substance: AMBRISENTAN
     Indication: PULMONARY ARTERIAL HYPERTENSION
     Dosage: 5 MG, 1X/DAY
     Route: 048
     Dates: start: 20140705, end: 20161106
  6. ENDOXAN /00021101/ [Suspect]
     Active Substance: CYCLOPHOSPHAMIDE
     Dosage: 1120 MG, CYCLIC
     Dates: start: 20141022, end: 20150409
  7. ALDACTONE [Concomitant]
     Active Substance: SPIRONOLACTONE
  8. UPTRAVI [Suspect]
     Active Substance: SELEXIPAG
     Indication: PULMONARY ARTERIAL HYPERTENSION
     Dosage: 200 UG, 2X/DAY
     Route: 048
     Dates: start: 20161012
  9. SPECIAFOLDINE [Concomitant]
     Active Substance: FOLIC ACID
  10. UPTRAVI [Suspect]
     Active Substance: SELEXIPAG
     Dosage: 800 UG,2X/DAY
     Dates: end: 20161106
  11. ENDOXAN /00021101/ [Suspect]
     Active Substance: CYCLOPHOSPHAMIDE
     Dosage: 1120 MG, CYCLIC
     Dates: start: 20160406, end: 20160607
  12. BACTRIM [Concomitant]
     Active Substance: SULFAMETHOXAZOLE\TRIMETHOPRIM
     Indication: PROPHYLAXIS
  13. REVATIO [Suspect]
     Active Substance: SILDENAFIL CITRATE
     Indication: PULMONARY ARTERIAL HYPERTENSION
     Dosage: 20 MG, 3X/DAY
     Route: 048
     Dates: start: 20140627, end: 20161106
  14. UPTRAVI [Suspect]
     Active Substance: SELEXIPAG
     Dosage: 600 UG, 2X/DAY
  15. INEXIUM /01479302/ [Concomitant]
     Active Substance: ESOMEPRAZOLE MAGNESIUM
  16. FUMAFER [Concomitant]
     Active Substance: FERROUS FUMARATE
  17. CELLCEPT [Concomitant]
     Active Substance: MYCOPHENOLATE MOFETIL\MYCOPHENOLATE MOFETIL HYDROCHLORIDE
     Dosage: 500 MG, 2X/DAY
     Dates: start: 20150616

REACTIONS (4)
  - Condition aggravated [Unknown]
  - Dyspnoea [Unknown]
  - Pulmonary hypertension [Unknown]
  - Sudden death [Fatal]

NARRATIVE: CASE EVENT DATE: 201609
